FAERS Safety Report 21367223 (Version 3)
Quarter: 2023Q1

REPORT INFORMATION
  Report Type: Spontaneous
  Country: US (occurrence: US)
  Receive Date: 20220923
  Receipt Date: 20230320
  Transmission Date: 20230418
  Serious: Yes (Hospitalization)
  Sender: FDA-Public Use
  Company Number: US-SA-2022SA387633

PATIENT
  Age: 61 Year
  Sex: Male

DRUGS (1)
  1. ELOCTATE [Suspect]
     Active Substance: EFMOROCTOCOG ALFA
     Dosage: 4550 IU (+/-10%)

REACTIONS (3)
  - Hospitalisation [Unknown]
  - Sinusitis [Unknown]
  - Medical procedure [Unknown]

NARRATIVE: CASE EVENT DATE: 20220827
